FAERS Safety Report 18518507 (Version 1)
Quarter: 2020Q4

REPORT INFORMATION
  Report Type: Spontaneous
  Country: DE (occurrence: DE)
  Receive Date: 20201118
  Receipt Date: 20201118
  Transmission Date: 20210114
  Serious: Yes (Hospitalization, Other)
  Sender: FDA-Public Use
  Company Number: NVSC2020DE300292

PATIENT
  Sex: Female
  Weight: 72 kg

DRUGS (4)
  1. NORVASC [Suspect]
     Active Substance: AMLODIPINE BESYLATE
     Indication: PRODUCT USED FOR UNKNOWN INDICATION
     Dosage: UNK
     Route: 065
     Dates: start: 201905
  2. HALOPERIDOL. [Suspect]
     Active Substance: HALOPERIDOL
     Indication: DISTURBANCE IN ATTENTION
     Dosage: 2 MG
     Route: 042
     Dates: start: 20190502, end: 20200618
  3. CLONIDINE. [Suspect]
     Active Substance: CLONIDINE
     Indication: DISTURBANCE IN ATTENTION
     Dosage: 0.08 MG (0.075 MG)
     Route: 042
     Dates: start: 20190502, end: 20200618
  4. LOCOL (FLUVASTATIN) [Suspect]
     Active Substance: FLUVASTATIN SODIUM
     Indication: PRODUCT USED FOR UNKNOWN INDICATION
     Dosage: UNK
     Route: 065

REACTIONS (12)
  - Pyrexia [Recovered/Resolved]
  - Agitation [Unknown]
  - Rhabdomyolysis [Unknown]
  - Contraindicated product administered [Unknown]
  - Cerebral ischaemia [Unknown]
  - Respiratory failure [Unknown]
  - Coma [Recovered/Resolved]
  - Unresponsive to stimuli [Unknown]
  - Hypernatraemia [Not Recovered/Not Resolved]
  - Blood creatine phosphokinase increased [Unknown]
  - Neuroleptic malignant syndrome [Unknown]
  - Muscle spasms [Unknown]

NARRATIVE: CASE EVENT DATE: 20190501
